FAERS Safety Report 14312447 (Version 3)
Quarter: 2018Q2

REPORT INFORMATION
  Report Type: Spontaneous
  Country: US (occurrence: US)
  Receive Date: 20171221
  Receipt Date: 20180516
  Transmission Date: 20180711
  Serious: No
  Sender: FDA-Public Use
  Company Number: US-PFIZER INC-2017540036

PATIENT
  Age: 65 Year
  Sex: Female
  Weight: 121.54 kg

DRUGS (6)
  1. DOCETAXEL. [Suspect]
     Active Substance: DOCETAXEL
     Dosage: UNK
     Dates: start: 20130814, end: 20131204
  2. DOCETAXEL. [Suspect]
     Active Substance: DOCETAXEL
     Dosage: UNK
     Dates: start: 20130814, end: 20131204
  3. CYTOXAN [Concomitant]
     Active Substance: CYCLOPHOSPHAMIDE
     Indication: CHEMOTHERAPY
     Dosage: UNK
  4. DOCETAXEL. [Suspect]
     Active Substance: DOCETAXEL
     Indication: BREAST CANCER FEMALE
  5. DOCETAXEL. [Suspect]
     Active Substance: DOCETAXEL
     Indication: CHEMOTHERAPY
     Dosage: 130 MG - 160 MG, EVERY 3 WEEKS, SIX CYCLES
     Dates: start: 20130814, end: 20131204
  6. NEOSAR [Concomitant]
     Active Substance: CYCLOPHOSPHAMIDE
     Indication: CHEMOTHERAPY
     Dosage: UNK

REACTIONS (5)
  - Hair texture abnormal [Not Recovered/Not Resolved]
  - Alopecia [Not Recovered/Not Resolved]
  - Hair colour changes [Not Recovered/Not Resolved]
  - Hair disorder [Not Recovered/Not Resolved]
  - Madarosis [Not Recovered/Not Resolved]

NARRATIVE: CASE EVENT DATE: 201309
